FAERS Safety Report 17229459 (Version 1)
Quarter: 2020Q1

REPORT INFORMATION
  Report Type: Spontaneous
  Country: US (occurrence: US)
  Receive Date: 20200102
  Receipt Date: 20200102
  Transmission Date: 20200409
  Serious: Yes (Disabling)
  Sender: FDA-Public Use
  Company Number: None

PATIENT
  Age: 26 Year
  Sex: Male
  Weight: 60.75 kg

DRUGS (1)
  1. MOXIFLOXACIN HCL [Suspect]
     Active Substance: MOXIFLOXACIN
     Indication: MYCOPLASMA INFECTION
     Dosage: ?          QUANTITY:14 TABLET(S);?
     Route: 048
     Dates: start: 20191204, end: 20191204

REACTIONS (15)
  - Arthralgia [None]
  - Mood altered [None]
  - Fatigue [None]
  - Insomnia [None]
  - Pain [None]
  - Suicidal ideation [None]
  - Neuropathy peripheral [None]
  - Personality change [None]
  - Anxiety [None]
  - Pain in extremity [None]
  - Bedridden [None]
  - Dysstasia [None]
  - Heart rate irregular [None]
  - Walking aid user [None]
  - Depression [None]

NARRATIVE: CASE EVENT DATE: 20191204
